FAERS Safety Report 11263101 (Version 5)
Quarter: 2015Q3

REPORT INFORMATION
  Report Type: Report from Study
  Country: US (occurrence: US)
  Receive Date: 20150710
  Receipt Date: 20150914
  Transmission Date: 20151125
  Serious: Yes (Hospitalization, Other)
  Sender: FDA-Public Use
  Company Number: US-ACTELION-A-US2015-119503

PATIENT
  Age: 63 Year
  Sex: Female
  Weight: 93.42 kg

DRUGS (5)
  1. WARFARIN [Concomitant]
     Active Substance: WARFARIN
  2. TYVASO [Suspect]
     Active Substance: TREPROSTINIL
     Dosage: 3 BREATHS 4X/ADAY
     Route: 055
  3. TYVASO [Suspect]
     Active Substance: TREPROSTINIL
     Indication: PULMONARY ARTERIAL HYPERTENSION
     Dosage: 9 BREATHS 4X/ADAY
     Route: 055
     Dates: start: 20150522, end: 20150629
  4. TYVASO [Suspect]
     Active Substance: TREPROSTINIL
     Dosage: 6 BREATHS 4X/ADAY
     Route: 055
  5. MACITENTAN [Suspect]
     Active Substance: MACITENTAN
     Indication: PULMONARY ARTERIAL HYPERTENSION
     Dosage: 10 MG, QD
     Route: 048
     Dates: start: 20150127

REACTIONS (25)
  - Oral pain [Unknown]
  - Mouth haemorrhage [Unknown]
  - Insomnia [Unknown]
  - Herpes zoster [Unknown]
  - Headache [Unknown]
  - Nausea [Unknown]
  - Contusion [Not Recovered/Not Resolved]
  - Condition aggravated [Not Recovered/Not Resolved]
  - Decreased appetite [Unknown]
  - Tongue blistering [Unknown]
  - Lip ulceration [Unknown]
  - Mouth ulceration [Not Recovered/Not Resolved]
  - Dysphagia [Unknown]
  - Lip blister [Unknown]
  - Seizure [Unknown]
  - Cellulitis [Recovering/Resolving]
  - Fluid overload [Recovering/Resolving]
  - Fall [Unknown]
  - Syncope [Unknown]
  - Oedema peripheral [Unknown]
  - Chest pain [Unknown]
  - Stomatitis [Unknown]
  - Oral mucosal blistering [Unknown]
  - Blister [Unknown]
  - Fluid retention [Unknown]

NARRATIVE: CASE EVENT DATE: 201505
